FAERS Safety Report 4267278-9 (Version None)
Quarter: 2004Q1

REPORT INFORMATION
  Report Type: 
  Country: None (occurrence: None)
  Receive Date: 20040108
  Receipt Date: 20031215
  Transmission Date: 20041129
  Serious: Yes (Death, Hospitalization, Disabling)
  Sender: FDA-Public Use
  Company Number: WAES 0312HUN00009

PATIENT
  Age: 52 Year
  Sex: Female
  Weight: 50 kg

DRUGS (8)
  1. SELENIUM (UNSPECIFIED) AND ASCORBIC ACID AND VITAMIN A AND VITAMIN E [Concomitant]
  2. CERIVASTATIN SODIUM [Suspect]
     Indication: HYPERCHOLESTEROLAEMIA
     Route: 048
     Dates: start: 20000401, end: 20010201
  3. FLUCONAZOLE [Concomitant]
     Route: 048
     Dates: start: 19960401
  4. MISOPROSTOL [Concomitant]
     Dates: start: 20000901
  5. OXYGEN [Concomitant]
  6. RILUZOLE [Concomitant]
     Indication: MYOPATHY
     Dates: start: 20001201, end: 20010809
  7. ZOCOR [Suspect]
     Indication: HYPERCHOLESTEROLAEMIA
     Route: 048
     Dates: start: 19990301, end: 20010201
  8. WARFARIN [Concomitant]
     Dates: start: 19961201, end: 20010809

REACTIONS (12)
  - AMYOTROPHIC LATERAL SCLEROSIS [None]
  - ASPARTATE AMINOTRANSFERASE INCREASED [None]
  - BLOOD CREATINE PHOSPHOKINASE INCREASED [None]
  - CHEST PAIN [None]
  - DRY MOUTH [None]
  - FATIGUE [None]
  - HEADACHE [None]
  - MUSCLE ATROPHY [None]
  - QUADRIPARESIS [None]
  - RESPIRATORY FAILURE [None]
  - SPUTUM RETENTION [None]
  - WEIGHT DECREASED [None]
